FAERS Safety Report 21568138 (Version 1)
Quarter: 2022Q4

REPORT INFORMATION
  Report Type: Other
  Country: CA (occurrence: None)
  Receive Date: 20221108
  Receipt Date: 20221108
  Transmission Date: 20230113
  Serious: No
  Sender: FDA-Public Use
  Company Number: CA-ROCHE-3214648

PATIENT
  Age: 44 Year
  Sex: Male

DRUGS (1)
  1. OCREVUS [Suspect]
     Active Substance: OCRELIZUMAB
     Indication: Relapsing-remitting multiple sclerosis
     Dosage: CONCENTRATE FOR INTRAVENOUS INFUSION, MORE DOSAGE INFORMATION IS 300 MG AT DAY 0 AND 14, THEN 600 MG
     Route: 042
     Dates: start: 20211001

REACTIONS (4)
  - Hyperhidrosis [Unknown]
  - Pain [Unknown]
  - Nasal congestion [Unknown]
  - Influenza [Unknown]

NARRATIVE: CASE EVENT DATE: 20221029
